FAERS Safety Report 16397518 (Version 1)
Quarter: 2019Q2

REPORT INFORMATION
  Report Type: Report from Study
  Country: GB (occurrence: GB)
  Receive Date: 20190606
  Receipt Date: 20190606
  Transmission Date: 20190711
  Serious: Yes (Hospitalization)
  Sender: FDA-Public Use
  Company Number: GB-SAMSUNG BIOEPIS-SB-2019-05681

PATIENT
  Age: 78 Year
  Sex: Male

DRUGS (1)
  1. BENEPALI [Suspect]
     Active Substance: ETANERCEPT
     Indication: RHEUMATOID ARTHRITIS
     Route: 058
     Dates: end: 20190310

REACTIONS (5)
  - Immunosuppression [Unknown]
  - Peripheral swelling [Recovered/Resolved]
  - Osteoarthritis [Unknown]
  - Product substitution issue [Unknown]
  - Sepsis [Unknown]

NARRATIVE: CASE EVENT DATE: 201903
